FAERS Safety Report 6412583-0 (Version None)
Quarter: 2009Q4

REPORT INFORMATION
  Report Type: 
  Country: None (occurrence: None)
  Receive Date: 20091023
  Receipt Date: 20091008
  Transmission Date: 20100525
  Serious: Yes (Other)
  Sender: FDA-Public Use
  Company Number: PHHY2009BR43755

PATIENT
  Sex: Female

DRUGS (1)
  1. DESERILA [Suspect]

REACTIONS (1)
  - CONSTIPATION [None]
